FAERS Safety Report 23814895 (Version 1)
Quarter: 2024Q2

REPORT INFORMATION
  Report Type: Spontaneous
  Country: US (occurrence: US)
  Receive Date: 20240503
  Receipt Date: 20240503
  Transmission Date: 20240715
  Serious: No
  Sender: FDA-Public Use
  Company Number: US-SANDOZ-SDZ2024US044695

PATIENT
  Sex: Female

DRUGS (1)
  1. HYRIMOZ [Suspect]
     Active Substance: ADALIMUMAB-ADAZ
     Indication: Product used for unknown indication
     Dosage: 40 MG
     Route: 058
     Dates: start: 20240430

REACTIONS (5)
  - Injection site bruising [Recovered/Resolved]
  - Tongue discomfort [Recovered/Resolved]
  - Oral discomfort [Recovered/Resolved]
  - Lip blister [Recovered/Resolved]
  - Injection site pain [Recovered/Resolved]
